FAERS Safety Report 4869488-6 (Version None)
Quarter: 2005Q4

REPORT INFORMATION
  Report Type: 
  Country: None (occurrence: None)
  Receive Date: 20051230
  Receipt Date: 20051215
  Transmission Date: 20060501
  Serious: Yes (Death, Hospitalization, Other)
  Sender: FDA-Public Use
  Company Number: ZA-BRISTOL-MYERS SQUIBB COMPANY-13217476

PATIENT
  Age: 39 Year
  Sex: Male

DRUGS (5)
  1. STOCRIN [Suspect]
     Indication: HIV INFECTION
     Route: 048
     Dates: start: 20050302, end: 20051215
  2. STAVUDINE [Suspect]
     Indication: HIV INFECTION
     Route: 048
     Dates: start: 20050302, end: 20051215
  3. LAMIVUDINE [Suspect]
     Indication: HIV INFECTION
     Route: 048
     Dates: start: 20050302, end: 20051215
  4. VITAMIN [Concomitant]
     Dates: start: 20040724
  5. BACTRIM [Concomitant]
     Dates: start: 20040726

REACTIONS (3)
  - ABDOMINAL PAIN [None]
  - LACTIC ACIDOSIS [None]
  - VOMITING [None]
